FAERS Safety Report 11978303 (Version 1)
Quarter: 2016Q1

REPORT INFORMATION
  Report Type: Report from Study
  Country: US (occurrence: US)
  Receive Date: 20160129
  Receipt Date: 20160129
  Transmission Date: 20160526
  Serious: No
  Sender: FDA-Public Use
  Company Number: US-ABBVIE-15K-163-1413081-00

PATIENT
  Sex: Male

DRUGS (1)
  1. HUMIRA [Suspect]
     Active Substance: ADALIMUMAB
     Indication: CROHN^S DISEASE
     Route: 065

REACTIONS (7)
  - Scab [Unknown]
  - Pruritus [Not Recovered/Not Resolved]
  - Seasonal allergy [Unknown]
  - Nasal discomfort [Unknown]
  - Cheilitis [Not Recovered/Not Resolved]
  - Rhinorrhoea [Unknown]
  - Rash macular [Not Recovered/Not Resolved]

NARRATIVE: CASE EVENT DATE: 2013
